FAERS Safety Report 14311796 (Version 1)
Quarter: 2017Q4

REPORT INFORMATION
  Report Type: Spontaneous
  Country: FR (occurrence: FR)
  Receive Date: 20171221
  Receipt Date: 20171221
  Transmission Date: 20180321
  Serious: Yes (Other)
  Sender: FDA-Public Use
  Company Number: FR-MERCK KGAA-2037512

PATIENT
  Age: 62 Year
  Sex: Female
  Weight: 101 kg

DRUGS (3)
  1. ESOMEPRAZOLE [Concomitant]
     Active Substance: ESOMEPRAZOLE
  2. PROPRANOLOL [Concomitant]
     Active Substance: PROPRANOLOL HYDROCHLORIDE
  3. NOVOTHYROX [Suspect]
     Active Substance: LEVOTHYROXINE SODIUM
     Indication: THYROIDECTOMY
     Route: 048
     Dates: start: 201704

REACTIONS (7)
  - Blood thyroid stimulating hormone increased [Recovered/Resolved]
  - Gastrointestinal disorder [Not Recovered/Not Resolved]
  - Irritability [Not Recovered/Not Resolved]
  - Myalgia [Not Recovered/Not Resolved]
  - Weight increased [Not Recovered/Not Resolved]
  - Insomnia [Not Recovered/Not Resolved]
  - Depressed mood [Not Recovered/Not Resolved]

NARRATIVE: CASE EVENT DATE: 20170401
